FAERS Safety Report 18596296 (Version 1)
Quarter: 2020Q4

REPORT INFORMATION
  Report Type: Spontaneous
  Country: US (occurrence: TW)
  Receive Date: 20201209
  Receipt Date: 20201209
  Transmission Date: 20210114
  Serious: Yes (Hospitalization)
  Sender: FDA-Public Use
  Company Number: TW-BIOMARINAP-TW-2020-133744

PATIENT
  Age: 40 Year
  Sex: Male

DRUGS (1)
  1. ALDURAZYME [Suspect]
     Active Substance: LARONIDASE
     Indication: PRODUCT USED FOR UNKNOWN INDICATION
     Dosage: 0.5 MILLIGRAM/KILOGRAM, QW
     Route: 042

REACTIONS (6)
  - Cough [Unknown]
  - Cardiomegaly [Unknown]
  - Illness [Unknown]
  - Dyspnoea [Unknown]
  - Pyrexia [Recovered/Resolved]
  - Oedema [Unknown]

NARRATIVE: CASE EVENT DATE: 20201128
